FAERS Safety Report 22999836 (Version 2)
Quarter: 2023Q4

REPORT INFORMATION
  Report Type: Report from Study
  Country: US (occurrence: US)
  Receive Date: 20230928
  Receipt Date: 20231106
  Transmission Date: 20240110
  Serious: Yes (Hospitalization, Other)
  Sender: FDA-Public Use
  Company Number: US-002147023-NVSC2023US163935

PATIENT
  Age: 6 Year
  Sex: Female

DRUGS (2)
  1. MEKINIST [Suspect]
     Active Substance: TRAMETINIB DIMETHYL SULFOXIDE
     Indication: Glioma
     Dosage: UNK (CURRENTLY IN THE MIDST OF CYCLE 29)
     Route: 065
     Dates: start: 20210216
  2. MEKINIST [Suspect]
     Active Substance: TRAMETINIB DIMETHYL SULFOXIDE
     Indication: Neurofibroma
     Dosage: 0.46 MG, QD (FOR 30 DAYS)
     Route: 048
     Dates: end: 20230717

REACTIONS (9)
  - Cellulitis [Not Recovered/Not Resolved]
  - Rash erythematous [Not Recovered/Not Resolved]
  - Femur fracture [Recovering/Resolving]
  - Vomiting [Unknown]
  - Gait disturbance [Not Recovered/Not Resolved]
  - Peripheral swelling [Recovering/Resolving]
  - Tibia fracture [Unknown]
  - White blood cell count decreased [Recovered/Resolved]
  - Anaemia [Recovered/Resolved]

NARRATIVE: CASE EVENT DATE: 20230716
